FAERS Safety Report 10846501 (Version 2)
Quarter: 2015Q2

REPORT INFORMATION
  Report Type: Spontaneous
  Country: US (occurrence: US)
  Receive Date: 20150220
  Receipt Date: 20150414
  Transmission Date: 20150821
  Serious: Yes (Hospitalization)
  Sender: FDA-Public Use
  Company Number: US-ELI_LILLY_AND_COMPANY-US201502003983

PATIENT
  Sex: Male

DRUGS (2)
  1. ADCIRCA [Suspect]
     Active Substance: TADALAFIL
     Indication: COR PULMONALE CHRONIC
  2. ADCIRCA [Suspect]
     Active Substance: TADALAFIL
     Indication: PULMONARY ARTERIAL HYPERTENSION
     Dosage: UNK UNK, UNKNOWN
     Route: 065
     Dates: start: 20130708

REACTIONS (4)
  - Chronic obstructive pulmonary disease [Unknown]
  - Pneumonia [Unknown]
  - Blood thyroid stimulating hormone increased [Unknown]
  - Pulmonary arterial hypertension [Unknown]
